FAERS Safety Report 13116623 (Version 3)
Quarter: 2017Q2

REPORT INFORMATION
  Report Type: Spontaneous
  Country: US (occurrence: US)
  Receive Date: 20170116
  Receipt Date: 20170608
  Transmission Date: 20170830
  Serious: Yes (Hospitalization, Other)
  Sender: FDA-Public Use
  Company Number: US-ASTRAZENECA-2017SE03706

PATIENT
  Age: 881 Month
  Sex: Female
  Weight: 57.6 kg

DRUGS (6)
  1. PROAIR HFA [Concomitant]
     Active Substance: ALBUTEROL SULFATE
     Indication: EMPHYSEMA
     Dosage: FOUR TIMES DAILY AS NEEDED
     Route: 055
  2. BUDESONIDE. [Suspect]
     Active Substance: BUDESONIDE
     Indication: EMPHYSEMA
     Dosage: 0.5 MG/2 ML TWICE DAILY
     Route: 055
     Dates: start: 2013
  3. TUDORZA PRESSAIR [Suspect]
     Active Substance: ACLIDINIUM BROMIDE
     Indication: EMPHYSEMA
     Dosage: 400MCG ONE PUFF, TWO TIMES A DAY
     Route: 055
     Dates: start: 20160625
  4. VIMPAT [Concomitant]
     Active Substance: LACOSAMIDE
     Indication: TRIGEMINAL NEURALGIA
     Route: 048
     Dates: start: 2011
  5. LYRICA [Concomitant]
     Active Substance: PREGABALIN
     Indication: TRIGEMINAL NEURALGIA
     Route: 048
  6. ELIQUIS [Concomitant]
     Active Substance: APIXABAN
     Indication: ATRIAL FIBRILLATION
     Route: 048
     Dates: start: 201604

REACTIONS (8)
  - Emphysema [Unknown]
  - Device malfunction [Recovered/Resolved]
  - Intentional device misuse [Unknown]
  - Weight decreased [Unknown]
  - Visual acuity reduced [Not Recovered/Not Resolved]
  - Atrial fibrillation [Unknown]
  - Diarrhoea [Recovered/Resolved]
  - Bronchitis [Unknown]

NARRATIVE: CASE EVENT DATE: 201603
